FAERS Safety Report 5248546-0 (Version None)
Quarter: 2007Q1

REPORT INFORMATION
  Report Type: 
  Country: None (occurrence: None)
  Receive Date: 20070227
  Receipt Date: 20070216
  Transmission Date: 20070707
  Serious: Yes (Other)
  Sender: FDA-Public Use
  Company Number: US-PFIZER INC-2007013328

PATIENT
  Sex: Male
  Weight: 62.1 kg

DRUGS (6)
  1. LIPITOR [Suspect]
  2. DIGITEK [Concomitant]
  3. GLYBURIDE [Concomitant]
  4. ALTACE [Concomitant]
  5. OPHTHALMOLOGICALS [Concomitant]
  6. DRUG, UNSPECIFIED [Concomitant]

REACTIONS (3)
  - BALANCE DISORDER [None]
  - MUSCULAR WEAKNESS [None]
  - NOCTURIA [None]
